FAERS Safety Report 7901659-4 (Version None)
Quarter: 2011Q4

REPORT INFORMATION
  Report Type: 
  Country: None (occurrence: None)
  Receive Date: 20111108
  Receipt Date: 20110628
  Transmission Date: 20120403
  Serious: Yes (Hospitalization)
  Sender: FDA-Public Use
  Company Number: US-ROCHE-785970

PATIENT
  Sex: Male

DRUGS (3)
  1. COPEGUS [Suspect]
     Indication: HEPATITIS C
     Dosage: LAST DOSE PRIOR TO SAE: 14 JUNE 2011.
     Route: 048
  2. PEGINTERFERON ALFA-2A [Suspect]
     Indication: HEPATITIS C
     Dosage: LAST DOSE PRIOR TO SAE: 14 JUNE 2011.
     Route: 058
  3. TG4040 (MVA-HCV) [Suspect]
     Indication: HEPATITIS C
     Dosage: DOSE: 0.5 ML AT THREE MONTHS. LAST DOSE PRIOR TO SAE: 11 APRIL 2011.
     Route: 065

REACTIONS (4)
  - ANAEMIA [None]
  - PYELONEPHRITIS ACUTE [None]
  - URINARY TRACT INFECTION [None]
  - RENAL FAILURE ACUTE [None]
